FAERS Safety Report 24300302 (Version 1)
Quarter: 2024Q3

REPORT INFORMATION
  Report Type: Spontaneous
  Country: US (occurrence: US)
  Receive Date: 20240909
  Receipt Date: 20240909
  Transmission Date: 20241017
  Serious: No
  Sender: BAUSCH AND LOMB
  Company Number: US-BAUSCHBL-2024BNL032677

PATIENT
  Age: 79 Year
  Sex: Female

DRUGS (2)
  1. DEXAMETHASONE\NEOMYCIN\POLYMYXIN B SULFATE [Suspect]
     Active Substance: DEXAMETHASONE\NEOMYCIN\POLYMYXIN B SULFATE
     Indication: Postoperative care
     Route: 047
     Dates: start: 20240823, end: 20240828
  2. AUGMENTIN (AMOXICILLIN SODIUM;CLAVULANATE POTASSIUM) [Concomitant]
     Indication: Product used for unknown indication
     Route: 065
     Dates: start: 202408, end: 20240828

REACTIONS (6)
  - Headache [Not Recovered/Not Resolved]
  - Vision blurred [Unknown]
  - Eye haemorrhage [Not Recovered/Not Resolved]
  - Drug hypersensitivity [Unknown]
  - Wrong technique in product usage process [Unknown]
  - Circumstance or information capable of leading to medication error [Unknown]

NARRATIVE: CASE EVENT DATE: 20240801
